FAERS Safety Report 5232130-9 (Version None)
Quarter: 2007Q1

REPORT INFORMATION
  Report Type: 
  Country: None (occurrence: None)
  Receive Date: 20061201
  Receipt Date: 20061027
  Transmission Date: 20070707
  Serious: No
  Sender: FDA-Public Use
  Company Number: US200610005219

PATIENT
  Age: 22 Year
  Sex: Female

DRUGS (4)
  1. CYMBALTA [Suspect]
     Indication: DEPRESSION
     Dosage: SEE IMAGE
     Route: 048
     Dates: start: 20060606, end: 20060915
  2. CYMBALTA [Suspect]
     Indication: DEPRESSION
     Dosage: SEE IMAGE
     Route: 048
     Dates: start: 20060915, end: 20061020
  3. CYMBALTA [Suspect]
     Indication: DEPRESSION
     Dosage: SEE IMAGE
     Route: 048
     Dates: start: 20061020
  4. SEROQUEL [Concomitant]

REACTIONS (5)
  - ABDOMINAL PAIN [None]
  - DIZZINESS [None]
  - GAIT DISTURBANCE [None]
  - NAUSEA [None]
  - VOMITING [None]
